FAERS Safety Report 6418628-6 (Version None)
Quarter: 2009Q4

REPORT INFORMATION
  Report Type: 
  Country: None (occurrence: None)
  Receive Date: 20091021
  Receipt Date: 20090624
  Transmission Date: 20100525
  Serious: No
  Sender: FDA-Public Use
  Company Number: SPV1-2009-00999

PATIENT
  Age: 7 Year
  Sex: Male
  Weight: 25.4 kg

DRUGS (2)
  1. VYVANSE [Suspect]
     Indication: ATTENTION DEFICIT/HYPERACTIVITY DISORDER
     Dosage: 20 MG, 1X/DAY:QD, ORAL : 30 MG, 1X/DAY:QD, ORAL
     Route: 048
     Dates: start: 20090201, end: 20090201
  2. VYVANSE [Suspect]
     Indication: ATTENTION DEFICIT/HYPERACTIVITY DISORDER
     Dosage: 20 MG, 1X/DAY:QD, ORAL : 30 MG, 1X/DAY:QD, ORAL
     Route: 048
     Dates: start: 20090422, end: 20090519

REACTIONS (8)
  - ANGER [None]
  - DECREASED APPETITE [None]
  - DEPRESSED MOOD [None]
  - DISTURBANCE IN ATTENTION [None]
  - EPISTAXIS [None]
  - HEADACHE [None]
  - INSOMNIA [None]
  - MOOD SWINGS [None]
